FAERS Safety Report 14281662 (Version 1)
Quarter: 2017Q4

REPORT INFORMATION
  Report Type: Spontaneous
  Country: US (occurrence: US)
  Receive Date: 20171213
  Receipt Date: 20171213
  Transmission Date: 20180321
  Serious: Yes (Death)
  Sender: FDA-Public Use
  Company Number: US-PERRIGO-17US031069

PATIENT
  Age: 64 Year
  Sex: Male

DRUGS (2)
  1. IBUPROFEN. [Suspect]
     Active Substance: IBUPROFEN
     Indication: COMPLETED SUICIDE
     Dosage: UNKNOWN
     Route: 065
  2. DROPERIDOL W/FENTANYL CITRATE [Suspect]
     Active Substance: DROPERIDOL\FENTANYL CITRATE
     Indication: COMPLETED SUICIDE
     Dosage: UNKNOWN
     Route: 065

REACTIONS (2)
  - Death [Fatal]
  - Completed suicide [None]
